FAERS Safety Report 8269890-9 (Version None)
Quarter: 2012Q2

REPORT INFORMATION
  Report Type: 
  Country: None (occurrence: None)
  Receive Date: 20120410
  Receipt Date: 20120404
  Transmission Date: 20120825
  Serious: No
  Sender: FDA-Public Use
  Company Number: US-PFIZER INC-2012086318

PATIENT
  Sex: Female

DRUGS (3)
  1. PREMARIN [Suspect]
     Dosage: 0.05 TOTAL  2XD
  2. LOTRISONE [Concomitant]
     Dosage: APPLY 3X DAILY
  3. FLUCONAZOLE [Concomitant]
     Dosage: 150 MG, 1 DAILY X 2 WEEKS

REACTIONS (1)
  - VULVOVAGINAL DISCOMFORT [None]
